FAERS Safety Report 9882415 (Version 2)
Quarter: 2019Q3

REPORT INFORMATION
  Report Type: Spontaneous
  Country: AU (occurrence: AU)
  Receive Date: 20140207
  Receipt Date: 20190717
  Transmission Date: 20191005
  Serious: Yes (Death, Other)
  Sender: FDA-Public Use
  Company Number: AU-PFIZER INC-2014032445

PATIENT
  Age: 42 Year
  Sex: Male

DRUGS (7)
  1. MORPHINE HCL [Interacting]
     Active Substance: MORPHINE HYDROCHLORIDE
  2. OLANZAPINE. [Interacting]
     Active Substance: OLANZAPINE
  3. CODEINE [Interacting]
     Active Substance: CODEINE
  4. ALPRAZOLAM. [Suspect]
     Active Substance: ALPRAZOLAM
  5. CANNABIS [Interacting]
     Active Substance: CANNABIS SATIVA SUBSP. INDICA TOP
  6. CYMBALTA [Interacting]
     Active Substance: DULOXETINE HYDROCHLORIDE
  7. HEROIN [Interacting]
     Active Substance: DIAMORPHINE

REACTIONS (5)
  - Pulmonary congestion [Not Recovered/Not Resolved]
  - Cholelithiasis [Not Recovered/Not Resolved]
  - Toxicity to various agents [Fatal]
  - Hepatitis C [Not Recovered/Not Resolved]
  - Drug interaction [Fatal]
